FAERS Safety Report 7266022-0 (Version None)
Quarter: 2011Q1

REPORT INFORMATION
  Report Type: 
  Country: None (occurrence: None)
  Receive Date: 20110131
  Receipt Date: 20110128
  Transmission Date: 20110831
  Serious: No
  Sender: FDA-Public Use
  Company Number: US-PFIZER INC-2011020983

PATIENT
  Sex: Male
  Weight: 116.1 kg

DRUGS (16)
  1. CELEBREX [Suspect]
     Indication: GOUTY ARTHRITIS
     Dosage: 200 MG, DAILY
     Route: 048
     Dates: start: 20110118, end: 20110128
  2. WARFARIN [Concomitant]
     Dosage: UNK, DAILY
  3. FISH OIL [Concomitant]
     Dosage: UNK
  4. NIASPAN [Concomitant]
     Indication: LOW DENSITY LIPOPROTEIN ABNORMAL
     Dosage: 1000 MG, 2X/DAY
  5. CARVEDILOL [Concomitant]
     Dosage: UNK
  6. CINNAMON BARK [Concomitant]
     Dosage: UNK
  7. ALLOPURINOL [Concomitant]
     Dosage: UNK
  8. POTASSIUM CHLORIDE [Concomitant]
     Dosage: 20 MG, UNK
  9. OMEGA 6 TRIGLYCERIDES [Concomitant]
     Dosage: UNK
  10. ATACAND [Concomitant]
     Dosage: UNK
  11. PROBENECID [Concomitant]
     Dosage: UNK
  12. FUROSEMIDE [Concomitant]
     Indication: FLUID RETENTION
     Dosage: 120 MG (80 MG AT 6.05AM IN THE MORNING AND 40MG AT 12.00PM IN THE MORNING)
  13. IRON [Concomitant]
     Dosage: UNK
  14. LOVAZA [Concomitant]
     Dosage: UNK
  15. OMEGA 9 TRIGLYCERIDES [Concomitant]
     Dosage: UNK
  16. VITAMIN E [Concomitant]
     Dosage: UNK

REACTIONS (5)
  - PRURITUS [None]
  - DRUG LEVEL INCREASED [None]
  - ERYTHEMA [None]
  - RASH [None]
  - SKIN DISCOLOURATION [None]
